FAERS Safety Report 26098937 (Version 1)
Quarter: 2025Q4

REPORT INFORMATION
  Report Type: Spontaneous
  Country: CN (occurrence: CN)
  Receive Date: 20251127
  Receipt Date: 20251127
  Transmission Date: 20260118
  Serious: Yes (Hospitalization)
  Sender: BOEHRINGER INGELHEIM
  Company Number: CN-BoehringerIngelheim-2025-BI-109388

PATIENT
  Age: 75 Year
  Sex: Male
  Weight: 67.000 kg

DRUGS (2)
  1. GILOTRIF [Suspect]
     Active Substance: AFATINIB
     Indication: Drug therapy
     Dates: start: 20250619, end: 20250626
  2. GILOTRIF [Suspect]
     Active Substance: AFATINIB
     Dates: start: 202506

REACTIONS (3)
  - Mouth ulceration [Recovering/Resolving]
  - Odynophagia [Unknown]
  - Epistaxis [Unknown]

NARRATIVE: CASE EVENT DATE: 20250622
